FAERS Safety Report 8233956-X (Version None)
Quarter: 2012Q1

REPORT INFORMATION
  Report Type: 
  Country: None (occurrence: None)
  Receive Date: 20120326
  Receipt Date: 20120321
  Transmission Date: 20120608
  Serious: Yes (Hospitalization)
  Sender: FDA-Public Use
  Company Number: IT-BAYER-2012-027825

PATIENT
  Age: 71 Year
  Sex: Male

DRUGS (11)
  1. LASIX [Concomitant]
  2. COUMADIN [Suspect]
     Indication: PULMONARY EMBOLISM
     Dosage: 5 MG, PRN
     Route: 048
     Dates: start: 20111116, end: 20111127
  3. ACETAMINOPHEN [Concomitant]
  4. ENOXAPARIN SODIUM [Concomitant]
     Indication: PULMONARY EMBOLISM
     Dosage: DAILY DOSE 12000 IU
     Route: 058
     Dates: start: 20111116, end: 20111122
  5. METOPROLOL SUCCINATE [Concomitant]
  6. OMEPRAZOLE [Concomitant]
     Dosage: 20 MG, UNK
     Route: 048
  7. MEDROL [Concomitant]
  8. ASPIRIN [Concomitant]
     Dosage: UNK
     Route: 048
  9. PROMAZINE HYDROCHLORIDE [Concomitant]
  10. CIPROFLOXACIN HCL [Suspect]
     Indication: BRONCHOPNEUMONIA
     Dosage: DAILY DOSE 400 MG
     Route: 042
     Dates: start: 20111123, end: 20111130
  11. CORDARONE [Concomitant]

REACTIONS (1)
  - HYPOCOAGULABLE STATE [None]
